FAERS Safety Report 9376161 (Version 2)
Quarter: 2013Q4

REPORT INFORMATION
  Report Type: Spontaneous
  Country: IT (occurrence: IT)
  Receive Date: 20130701
  Receipt Date: 20131029
  Transmission Date: 20140711
  Serious: Yes (Other)
  Sender: FDA-Public Use
  Company Number: IT-009507513-1306ITA011639

PATIENT
  Age: 64 Year
  Sex: Male
  Weight: 89 kg

DRUGS (4)
  1. VICTRELIS [Suspect]
     Indication: HEPATITIS C
     Dosage: TOTAL DAILY DOSE 12 TABLET, TID
     Route: 048
     Dates: start: 20130430, end: 20130528
  2. COPEGUS [Concomitant]
     Indication: HEPATITIS C
     Dosage: 1000MG, DAILY
     Route: 048
     Dates: start: 20130402, end: 20130528
  3. COPEGUS [Concomitant]
     Dosage: 1000MG, QD
     Route: 048
     Dates: start: 2013
  4. PEGASYS [Concomitant]
     Indication: HEPATITIS C
     Dosage: 180 MICROGRAM, WEAKLY
     Route: 058
     Dates: start: 20130402, end: 20130528

REACTIONS (1)
  - Ascites [Recovered/Resolved]
